FAERS Safety Report 18096736 (Version 1)
Quarter: 2020Q3

REPORT INFORMATION
  Report Type: Spontaneous
  Country: NL (occurrence: NL)
  Receive Date: 20200731
  Receipt Date: 20200731
  Transmission Date: 20201103
  Serious: Yes (Disabling)
  Sender: FDA-Public Use
  Company Number: NL-TEVA-2020-NL-1807140

PATIENT
  Sex: Male

DRUGS (3)
  1. BISOPROLOL [Concomitant]
     Active Substance: BISOPROLOL
     Dosage: 2.5 MG (MILLIGRAM), THERAPY START AND END DATE  : ASKED BUT UNKNOWN
  2. HYDROCHLOORTHIAZIDE [Concomitant]
     Active Substance: HYDROCHLOROTHIAZIDE
     Dosage: 12.5 MG (MILLIGRAM), THERAPY START AND END DATE  : ASKED BUT UNKNOWN
  3. RISPERIDON [Suspect]
     Active Substance: RISPERIDONE
     Indication: EMOTIONAL DISORDER
     Dosage: 1 MILLIGRAM DAILY; 1DD1, THERAPY END DATE : ASKED BUT UNKNOWN
     Dates: start: 2020

REACTIONS (2)
  - Extrasystoles [Not Recovered/Not Resolved]
  - Atrial fibrillation [Not Recovered/Not Resolved]
